FAERS Safety Report 10011091 (Version 1)
Quarter: 2014Q1

REPORT INFORMATION
  Report Type: Spontaneous
  Country: DE (occurrence: None)
  Receive Date: 20140312
  Receipt Date: 20140312
  Transmission Date: 20141002
  Serious: Yes (Other)
  Sender: FDA-Public Use
  Company Number: 1402-0439

PATIENT
  Sex: Female

DRUGS (1)
  1. EYLEA (AFLIBERCEPT) (SOLUTION FOR INJECTION) (AFLIBERCEPT) [Suspect]
     Indication: AGE-RELATED MACULAR DEGENERATION
     Dates: start: 20130618

REACTIONS (3)
  - Blindness unilateral [None]
  - Visual acuity reduced [None]
  - Inappropriate schedule of drug administration [None]
